FAERS Safety Report 4576676-5 (Version None)
Quarter: 2005Q1

REPORT INFORMATION
  Report Type: 
  Country: None (occurrence: None)
  Receive Date: 20050210
  Receipt Date: 20050131
  Transmission Date: 20050727
  Serious: Yes (Hospitalization)
  Sender: FDA-Public Use
  Company Number: CH-NOVOPROD-241980

PATIENT
  Age: 59 Year
  Sex: Female

DRUGS (3)
  1. ACTIVELLE [Suspect]
     Indication: HORMONE REPLACEMENT THERAPY
  2. LARIAM                                  /AUT/ [Concomitant]
     Dosage: 250 MG, QD
     Route: 048
  3. PRAVASTATIN SODIUM [Concomitant]
     Dosage: 20 MG, QD
     Route: 048

REACTIONS (7)
  - ABDOMINAL PAIN [None]
  - ANOREXIA [None]
  - CHROMATURIA [None]
  - FATIGUE [None]
  - HEPATITIS A ANTIBODY POSITIVE [None]
  - NAUSEA [None]
  - OCULAR ICTERUS [None]
